FAERS Safety Report 7883193-3 (Version None)
Quarter: 2011Q4

REPORT INFORMATION
  Report Type: 
  Country: None (occurrence: None)
  Receive Date: 20111101
  Receipt Date: 20111101
  Transmission Date: 20120403
  Serious: Yes (Hospitalization)
  Sender: FDA-Public Use
  Company Number: None

PATIENT
  Age: 70 Year
  Sex: Male

DRUGS (1)
  1. SULFAMETHOXAZOLE AND TRIMETHOPRIM [Suspect]
     Indication: OSTEOMYELITIS
     Dosage: MG PO
     Route: 048
     Dates: start: 20110403, end: 20110403

REACTIONS (1)
  - RENAL FAILURE ACUTE [None]
